FAERS Safety Report 6579220-6 (Version None)
Quarter: 2010Q1

REPORT INFORMATION
  Report Type: 
  Country: None (occurrence: None)
  Receive Date: 20100212
  Receipt Date: 20100209
  Transmission Date: 20100710
  Serious: No
  Sender: FDA-Public Use
  Company Number: US-B.I. PHARMACEUTICALS,INC./RIDGEFIELD-2010-BP-01622BP

PATIENT

DRUGS (1)
  1. MOBIC [Suspect]

REACTIONS (1)
  - ULCER [None]
